FAERS Safety Report 15588980 (Version 1)
Quarter: 2018Q4

REPORT INFORMATION
  Report Type: Spontaneous
  Country: NL (occurrence: NL)
  Receive Date: 20181106
  Receipt Date: 20181106
  Transmission Date: 20190205
  Serious: Yes (Hospitalization, Other)
  Sender: FDA-Public Use
  Company Number: NL-AUROBINDO-AUR-APL-2018-053683

PATIENT
  Age: 75 Year
  Sex: Male

DRUGS (3)
  1. BEVACIZUMAB. [Suspect]
     Active Substance: BEVACIZUMAB
     Indication: COLORECTAL CANCER METASTATIC
     Dosage: MOST RECENT DOSE ON 02/OCT/2018 ()
     Route: 065
     Dates: start: 20180904
  2. OXALIPLATIN. [Suspect]
     Active Substance: OXALIPLATIN
     Indication: COLORECTAL CANCER METASTATIC
     Dosage: MOST RECENT DOSE ON 02/OCT/2018 ()
     Route: 065
     Dates: start: 20180904
  3. CAPECITABINE. [Suspect]
     Active Substance: CAPECITABINE
     Indication: COLORECTAL CANCER METASTATIC
     Dosage: MOST RECENT DOSE ON 02/OCT/2018 ()
     Route: 065
     Dates: start: 20180904

REACTIONS (3)
  - Amnesia [Recovered/Resolved]
  - Cerebrovascular accident [Recovered/Resolved]
  - Hemianopia [Recovered/Resolved]

NARRATIVE: CASE EVENT DATE: 20181008
